FAERS Safety Report 6123322-5 (Version None)
Quarter: 2009Q1

REPORT INFORMATION
  Report Type: 
  Country: None (occurrence: None)
  Receive Date: 20090318
  Receipt Date: 20090311
  Transmission Date: 20090719
  Serious: Yes (Other)
  Sender: FDA-Public Use
  Company Number: US-ABBOTT-09P-163-0499021-00

PATIENT
  Sex: Male
  Weight: 82.628 kg

DRUGS (5)
  1. HUMIRA [Suspect]
     Indication: POLYARTHRITIS
     Route: 058
     Dates: start: 20080701, end: 20081213
  2. HUMIRA [Suspect]
     Indication: PSORIATIC ARTHROPATHY
     Route: 058
     Dates: start: 20070418
  3. BCG TREATMENT [Concomitant]
     Indication: BLADDER CANCER
  4. METHOTREXATE [Concomitant]
     Indication: POLYARTHRITIS
  5. METHOTREXATE [Concomitant]
     Indication: PSORIATIC ARTHROPATHY

REACTIONS (6)
  - ARTHROPATHY [None]
  - C-REACTIVE PROTEIN INCREASED [None]
  - MALIGNANT NEOPLASM PROGRESSION [None]
  - POLYARTHRITIS [None]
  - RED BLOOD CELL SEDIMENTATION RATE INCREASED [None]
  - RED BLOOD CELLS URINE POSITIVE [None]
